FAERS Safety Report 4789245-9 (Version None)
Quarter: 2005Q4

REPORT INFORMATION
  Report Type: 
  Country: None (occurrence: None)
  Receive Date: 20051004
  Receipt Date: 20050921
  Transmission Date: 20060501
  Serious: Yes (Hospitalization)
  Sender: FDA-Public Use
  Company Number: WAES 0509COL00017

PATIENT
  Age: 69 Year
  Sex: Male

DRUGS (6)
  1. COZAAR [Suspect]
     Indication: CARDIAC FAILURE CONGESTIVE
     Dosage: PO
     Route: 048
     Dates: start: 20040331
  2. ASPIRIN [Concomitant]
  3. CLOPIDOGREL BISULFATE [Concomitant]
  4. FUROSEMIDE [Concomitant]
  5. LOVASTATIN [Concomitant]
  6. METOPROLOL SUCCINATE [Concomitant]

REACTIONS (1)
  - CONVULSION [None]
